FAERS Safety Report 6877358-7 (Version None)
Quarter: 2010Q3

REPORT INFORMATION
  Report Type: 
  Country: None (occurrence: None)
  Receive Date: 20100727
  Receipt Date: 20091014
  Transmission Date: 20110219
  Serious: No
  Sender: FDA-Public Use
  Company Number: US-ABBOTT-09P-163-0598560-00

PATIENT
  Sex: Female
  Weight: 113.5 kg

DRUGS (5)
  1. SYNTHROID [Suspect]
     Indication: HYPOTHYROIDISM
     Dates: start: 20080101, end: 20090801
  2. SYNTHROID [Suspect]
     Route: 048
     Dates: start: 20090801
  3. ALLEGRA [Concomitant]
     Indication: RASH
  4. GILBURIDE [Concomitant]
     Indication: PRODUCT USED FOR UNKNOWN INDICATION
  5. GLYBERIDE [Concomitant]
     Indication: PRODUCT USED FOR UNKNOWN INDICATION

REACTIONS (4)
  - BLOOD THYROID STIMULATING HORMONE INCREASED [None]
  - PRURITUS [None]
  - RASH [None]
  - URTICARIA [None]
